FAERS Safety Report 25305771 (Version 3)
Quarter: 2025Q3

REPORT INFORMATION
  Report Type: Spontaneous
  Country: US (occurrence: US)
  Receive Date: 20250513
  Receipt Date: 20250910
  Transmission Date: 20251021
  Serious: No
  Sender: BIOGEN
  Company Number: US-BIOGEN-2024BI01269130

PATIENT
  Sex: Male

DRUGS (4)
  1. AVONEX [Suspect]
     Active Substance: INTERFERON BETA-1A
     Indication: Multiple sclerosis
     Dosage: 30MCG/0.5ML (4/KIT)
     Route: 050
     Dates: start: 20200402
  2. AVONEX [Suspect]
     Active Substance: INTERFERON BETA-1A
  3. AVONEX [Suspect]
     Active Substance: INTERFERON BETA-1A
  4. AVONEX [Suspect]
     Active Substance: INTERFERON BETA-1A

REACTIONS (11)
  - Sluggishness [Unknown]
  - Dysstasia [Unknown]
  - Motor dysfunction [Unknown]
  - Polyneuropathy [Unknown]
  - Angiopathy [Unknown]
  - Tinnitus [Unknown]
  - Gait disturbance [Unknown]
  - Cerebral disorder [Unknown]
  - Musculoskeletal stiffness [Unknown]
  - Eye disorder [Unknown]
  - Fatigue [Recovered/Resolved]
